FAERS Safety Report 5592418-9 (Version None)
Quarter: 2008Q1

REPORT INFORMATION
  Report Type: 
  Country: None (occurrence: None)
  Receive Date: 20080115
  Receipt Date: 20080107
  Transmission Date: 20080703
  Serious: Yes (Death, Hospitalization, Other)
  Sender: FDA-Public Use
  Company Number: JP-PFIZER INC-2007095803

PATIENT
  Sex: Male
  Weight: 51 kg

DRUGS (9)
  1. AZULFIDINE EN-TABS [Suspect]
     Indication: RHEUMATOID ARTHRITIS
     Route: 048
  2. RHEUMATREX [Suspect]
     Indication: RHEUMATOID ARTHRITIS
     Route: 048
  3. RINDERON [Concomitant]
     Route: 048
  4. MOBIC [Concomitant]
     Route: 048
  5. ALFACALCIDOL [Concomitant]
     Route: 048
  6. BREDININ [Concomitant]
     Route: 048
  7. LIPITOR [Concomitant]
     Route: 048
  8. CALCIUM LACTATE [Concomitant]
     Route: 048
  9. ULCERLMIN [Concomitant]
     Route: 048

REACTIONS (3)
  - ANOREXIA [None]
  - MALAISE [None]
  - PANCYTOPENIA [None]
